FAERS Safety Report 19611248 (Version 2)
Quarter: 2021Q3

REPORT INFORMATION
  Report Type: Report from Study
  Country: PK (occurrence: PK)
  Receive Date: 20210726
  Receipt Date: 20210729
  Transmission Date: 20211014
  Serious: Yes (Death, Hospitalization, Other)
  Sender: FDA-Public Use
  Company Number: PK-TAKEDA-2021TUS046348

PATIENT
  Sex: Male
  Weight: 30 kg

DRUGS (2)
  1. VITAMIN D [Concomitant]
     Active Substance: VITAMIN D NOS
     Indication: PRODUCT USED FOR UNKNOWN INDICATION
     Dosage: 400 INTERNATIONAL UNIT
     Route: 048
     Dates: start: 2018
  2. IDURSULFASE [Suspect]
     Active Substance: IDURSULFASE
     Indication: MUCOPOLYSACCHARIDOSIS II
     Dosage: UNK
     Route: 065
     Dates: start: 2016

REACTIONS (5)
  - Generalised tonic-clonic seizure [Unknown]
  - Central nervous system infection [Unknown]
  - Respiratory distress [Unknown]
  - Altered state of consciousness [Unknown]
  - Cardiac arrest [Fatal]
